FAERS Safety Report 19767077 (Version 1)
Quarter: 2021Q3

REPORT INFORMATION
  Report Type: Report from Study
  Country: CH (occurrence: CH)
  Receive Date: 20210830
  Receipt Date: 20210830
  Transmission Date: 20211014
  Serious: Yes (Other)
  Sender: FDA-Public Use
  Company Number: CH-NEBO-PC007311

PATIENT
  Age: 25 Year
  Sex: Female

DRUGS (1)
  1. MONOFER [Suspect]
     Active Substance: IRON ISOMALTOSIDE 1000
     Indication: IRON DEFICIENCY
     Route: 042

REACTIONS (4)
  - Hypothermia [Recovered/Resolved]
  - Pruritus [Recovered/Resolved]
  - Sense of oppression [Recovered/Resolved]
  - Palpitations [Recovered/Resolved]
